FAERS Safety Report 13371193 (Version 1)
Quarter: 2017Q1

REPORT INFORMATION
  Report Type: Spontaneous
  Country: US (occurrence: US)
  Receive Date: 20170324
  Receipt Date: 20170324
  Transmission Date: 20170429
  Serious: Yes (Other)
  Sender: FDA-Public Use
  Company Number: US-TEVA-751791USA

PATIENT
  Sex: Female

DRUGS (1)
  1. COPAXONE [Suspect]
     Active Substance: GLATIRAMER ACETATE
     Dosage: FORM STRENGTH UNKNOWN
     Route: 065

REACTIONS (6)
  - Diplopia [Unknown]
  - Adverse event [Unknown]
  - Blindness unilateral [Unknown]
  - Fatigue [Unknown]
  - Fibromyalgia [Unknown]
  - Pain [Unknown]
